FAERS Safety Report 11813789 (Version 1)
Quarter: 2015Q4

REPORT INFORMATION
  Report Type: Spontaneous
  Country: US (occurrence: None)
  Receive Date: 20151208
  Receipt Date: 20151208
  Transmission Date: 20160305
  Serious: No
  Sender: FDA-Public Use
  Company Number: None

PATIENT
  Age: 58 Year
  Sex: Male
  Weight: 82.56 kg

DRUGS (1)
  1. LISINOPRIL 40 MG LUPIN PHARMACE [Suspect]
     Active Substance: LISINOPRIL
     Indication: HYPERTENSION
     Dosage: 1 PILL
     Route: 048
     Dates: start: 20100206, end: 20120709

REACTIONS (1)
  - Activities of daily living impaired [None]

NARRATIVE: CASE EVENT DATE: 20120907
